FAERS Safety Report 6334361-3 (Version None)
Quarter: 2009Q3

REPORT INFORMATION
  Report Type: 
  Country: None (occurrence: None)
  Receive Date: 20090831
  Receipt Date: 20071227
  Transmission Date: 20100115
  Serious: Yes (Other)
  Sender: FDA-Public Use
  Company Number: US-ASTRAZENECA-2007UW03765

PATIENT
  Age: 389 Month
  Sex: Male
  Weight: 64.9 kg

DRUGS (6)
  1. SEROQUEL [Suspect]
     Indication: SLEEP DISORDER
     Route: 048
     Dates: start: 20031101, end: 20041101
  2. SEROQUEL [Suspect]
     Dosage: 25 MG -75 MG
     Route: 048
     Dates: start: 20050111
  3. LEXAPRO [Concomitant]
     Indication: DEPRESSION
     Route: 048
     Dates: start: 20050111
  4. ATIVAN [Concomitant]
     Route: 048
     Dates: start: 20050616
  5. HYDROCODONE [Concomitant]
     Indication: ANXIETY
     Dates: start: 20050616
  6. OXYCODONE [Concomitant]
     Route: 048
     Dates: start: 20050906

REACTIONS (4)
  - ALCOHOLIC PANCREATITIS [None]
  - PANCREATIC PSEUDOCYST [None]
  - PANCREATITIS [None]
  - PANCREATITIS ACUTE [None]
